FAERS Safety Report 5709207-4 (Version None)
Quarter: 2008Q2

REPORT INFORMATION
  Report Type: 
  Country: None (occurrence: None)
  Receive Date: 20080418
  Receipt Date: 20080409
  Transmission Date: 20081010
  Serious: Yes (Other)
  Sender: FDA-Public Use
  Company Number: CA-JNJFOC-20080403339

PATIENT
  Age: 17 Year
  Sex: Female

DRUGS (4)
  1. REMICADE [Suspect]
     Dosage: 5TH INFUSION
     Route: 042
  2. REMICADE [Suspect]
     Indication: CROHN'S DISEASE
     Dosage: 4 INFUSIONS ON  UNSPECIFIED DATES
     Route: 042
  3. BENADRYL [Concomitant]
     Indication: PREMEDICATION
     Route: 048
  4. SOLU-CORTEF [Concomitant]
     Indication: PREMEDICATION
     Route: 042

REACTIONS (8)
  - CHEST DISCOMFORT [None]
  - ERYTHEMA [None]
  - HOT FLUSH [None]
  - HYPOXIA [None]
  - INFUSION RELATED REACTION [None]
  - LACRIMATION INCREASED [None]
  - PALPITATIONS [None]
  - THROAT TIGHTNESS [None]
